FAERS Safety Report 20748987 (Version 1)
Quarter: 2022Q2

REPORT INFORMATION
  Report Type: Spontaneous
  Country: AU (occurrence: AU)
  Receive Date: 20220426
  Receipt Date: 20220426
  Transmission Date: 20220720
  Serious: Yes (Other)
  Sender: FDA-Public Use
  Company Number: AU-BRISTOL-MYERS SQUIBB COMPANY-2022-026828

PATIENT
  Age: 77 Year
  Sex: Female

DRUGS (2)
  1. REVLIMID [Suspect]
     Active Substance: LENALIDOMIDE
     Indication: Plasma cell myeloma
     Dosage: DOSE : CURRENT 15 MG, PREVIOUS 25 MG;     FREQ : CURRENT DAILY D1-21, PREVIOUS DAILY D1-21
  2. REVLIMID [Suspect]
     Active Substance: LENALIDOMIDE
     Dosage: DOSE : CURRENT 15 MG, PREVIOUS 25 MG;     FREQ : CURRENT DAILY D1-21, PREVIOUS DAILY D1-21

REACTIONS (1)
  - Renal impairment [Unknown]
